FAERS Safety Report 5044672-X (Version None)
Quarter: 2006Q3

REPORT INFORMATION
  Report Type: 
  Country: None (occurrence: None)
  Receive Date: 20060706
  Receipt Date: 20060628
  Transmission Date: 20061208
  Serious: Yes (Hospitalization)
  Sender: FDA-Public Use
  Company Number: JP-BOEHRINGER INGELHEIM PHARMACEUTICALS, INC.-2006-BP-07417NB

PATIENT
  Age: 71 Year
  Sex: Male

DRUGS (4)
  1. MICARDIS [Suspect]
     Indication: CARDIOVASCULAR DISORDER
     Route: 048
     Dates: start: 20060520, end: 20060527
  2. WARFARIN SODIUM [Concomitant]
     Route: 048
  3. LASIX [Concomitant]
     Route: 048
  4. ALDACTONE [Concomitant]
     Route: 048

REACTIONS (2)
  - GRANULOCYTOPENIA [None]
  - LEUKOPENIA [None]
